FAERS Safety Report 18450764 (Version 1)
Quarter: 2020Q4

REPORT INFORMATION
  Report Type: Spontaneous
  Country: US (occurrence: US)
  Receive Date: 20201030
  Receipt Date: 20201030
  Transmission Date: 20210114
  Serious: Yes (Disabling)
  Sender: FDA-Public Use
  Company Number: US-ROCHE-2701949

PATIENT
  Age: 72 Year
  Sex: Female
  Weight: 83.91 kg

DRUGS (5)
  1. IBUPROFEN. [Concomitant]
     Active Substance: IBUPROFEN
     Dosage: 2 IBUPROFEN 400 MG TABLETS AT NIGHT, AND THEN TAKES 1 IBUPROFEN 400 MG TABLET IN THE MORNING
  2. ACTEMRA [Suspect]
     Active Substance: TOCILIZUMAB
     Indication: RHEUMATOID ARTHRITIS
     Route: 065
  3. XELJANZ XR [Concomitant]
     Active Substance: TOFACITINIB CITRATE
     Indication: RHEUMATOID ARTHRITIS
     Dosage: 11MG TABLET BY MOUTH ONCE A DAY , PROLONGED-RELEASE TABLET
     Route: 048
  4. XYLOCAINE [Concomitant]
     Active Substance: LIDOCAINE HYDROCHLORIDE
     Indication: PAIN
     Dosage: 5% PATCHES
  5. TYLENOL [Concomitant]
     Active Substance: ACETAMINOPHEN
     Dosage: 1000 MG (2 TYLENOL 500 MG TABLETS) ON SUNDAY MORNING, AND A TYLENOL 500 MG TABLET ON SUNDAY NIGHT

REACTIONS (9)
  - Pyrexia [Unknown]
  - Joint swelling [Unknown]
  - Finger deformity [Unknown]
  - Drug ineffective [Unknown]
  - Erythema [Unknown]
  - Arthralgia [Unknown]
  - Fatigue [Not Recovered/Not Resolved]
  - Musculoskeletal stiffness [Unknown]
  - Joint range of motion decreased [Unknown]

NARRATIVE: CASE EVENT DATE: 202009
